FAERS Safety Report 4431504-3 (Version None)
Quarter: 2004Q3

REPORT INFORMATION
  Report Type: 
  Country: None (occurrence: None)
  Receive Date: 20040818
  Receipt Date: 20040802
  Transmission Date: 20050211
  Serious: Yes (Other)
  Sender: FDA-Public Use
  Company Number: USA040874305

PATIENT
  Age: 67 Year
  Sex: Female

DRUGS (8)
  1. FORTEO [Suspect]
     Indication: OSTEOPOROSIS
     Dosage: 20 UG/1 DAY
     Dates: start: 20030901
  2. PAXIL [Concomitant]
  3. PREVACID [Concomitant]
  4. MULTIVITAMIN [Concomitant]
  5. CENTRUM [Concomitant]
  6. VITAMIN E [Concomitant]
  7. ICAPS [Concomitant]
  8. TIMOPTIC [Concomitant]

REACTIONS (2)
  - COLON CANCER [None]
  - PHARMACEUTICAL PRODUCT COMPLAINT [None]
